FAERS Safety Report 4365743-7 (Version None)
Quarter: 2004Q2

REPORT INFORMATION
  Report Type: 
  Country: None (occurrence: None)
  Receive Date: 20040527
  Receipt Date: 20040519
  Transmission Date: 20050107
  Serious: Yes (Hospitalization, Other)
  Sender: FDA-Public Use
  Company Number: BE-JNJFOC-20040201607

PATIENT
  Age: 2 Year
  Sex: Male
  Weight: 11.9 kg

DRUGS (17)
  1. PREPULSID [Suspect]
     Indication: BRONCHIAL HYPERACTIVITY
     Route: 065
  2. PREPULSID [Suspect]
     Indication: GASTROOESOPHAGEAL REFLUX DISEASE
     Route: 065
  3. AUGMENTIN [Concomitant]
     Route: 042
  4. AUGMENTIN [Concomitant]
     Route: 042
  5. PULMICORT [Concomitant]
  6. PULMICORT [Concomitant]
  7. VENTOLIN [Concomitant]
  8. ATROVENT [Concomitant]
  9. OMEPRAZOLE [Concomitant]
  10. AMOXICILLIN [Concomitant]
  11. ZANTAC [Concomitant]
  12. CECLOR [Concomitant]
  13. DUOVENT [Concomitant]
  14. DUOVENT [Concomitant]
  15. ZITHROMAX [Concomitant]
  16. BRICANYL [Concomitant]
  17. ZINNAT [Concomitant]

REACTIONS (7)
  - ADENOIDECTOMY [None]
  - BRONCHIAL HYPERACTIVITY [None]
  - BRONCHOPNEUMONIA [None]
  - CONDITION AGGRAVATED [None]
  - DRUG INEFFECTIVE [None]
  - RESPIRATORY SYNCYTIAL VIRUS INFECTION [None]
  - RHINITIS [None]
